FAERS Safety Report 8451405 (Version 2)
Quarter: 2012Q4

REPORT INFORMATION
  Report Type: 
  Country: US (occurrence: US)
  Receive Date: 20120309
  Receipt Date: 20120927
  Transmission Date: 20130627
  Serious: No
  Sender: FDA-Public Use
  Company Number: US-AMGEN-USASP2011065702

PATIENT
  Age: 75 Year
  Sex: Female

DRUGS (9)
  1. PROLIA [Suspect]
     Indication: OSTEOPOROSIS POSTMENOPAUSAL
     Dosage: 60 mg, q6mo
     Route: 058
     Dates: start: 201104
  2. NIASPAN ER [Concomitant]
     Indication: BLOOD CHOLESTEROL
     Dosage: UNK
  3. NIASPAN ER [Concomitant]
  4. NIASPAN ER [Concomitant]
  5. HYOSCYAMINE [Concomitant]
     Indication: IRRITABLE BOWEL SYNDROME
     Dosage: UNK
  6. ALIGN [Concomitant]
     Dosage: UNK
  7. MICARDIS [Concomitant]
     Indication: BLOOD PRESSURE
     Dosage: UNK
  8. ESTROPIPATE [Concomitant]
     Dosage: UNK
  9. HYOSCYAMINE HYDROBROMIDE [Concomitant]

REACTIONS (5)
  - Breast calcifications [Not Recovered/Not Resolved]
  - Spinal pain [Not Recovered/Not Resolved]
  - Pain [Not Recovered/Not Resolved]
  - Back pain [Recovered/Resolved]
  - Musculoskeletal pain [Recovered/Resolved]
